FAERS Safety Report 6053829-0 (Version None)
Quarter: 2009Q1

REPORT INFORMATION
  Report Type: 
  Country: None (occurrence: None)
  Receive Date: 20090127
  Receipt Date: 20081126
  Transmission Date: 20090719
  Serious: Yes (Hospitalization, Other)
  Sender: FDA-Public Use
  Company Number: US-TEVA-181550USA

PATIENT
  Age: 17 Year
  Sex: Male

DRUGS (1)
  1. COPAXONE [Suspect]
     Indication: MULTIPLE SCLEROSIS
     Route: 058
     Dates: start: 20080215, end: 20080808

REACTIONS (4)
  - ANAPHYLACTIC REACTION [None]
  - ERYTHEMA [None]
  - LACRIMATION INCREASED [None]
  - SWELLING FACE [None]
